FAERS Safety Report 24332532 (Version 1)
Quarter: 2024Q3

REPORT INFORMATION
  Report Type: Spontaneous
  Country: US (occurrence: US)
  Receive Date: 20240918
  Receipt Date: 20240918
  Transmission Date: 20241017
  Serious: Yes (Other)
  Sender: MYLAN
  Company Number: US-MYLANLABS-2024M1084497

PATIENT
  Age: 56 Year
  Sex: Female

DRUGS (4)
  1. DOXORUBICIN [Suspect]
     Active Substance: DOXORUBICIN
     Indication: Ovarian cancer stage IV
     Dosage: UNK, CYCLE (RECEIVED 6 CYCLES)
     Route: 065
  2. BEVACIZUMAB [Suspect]
     Active Substance: BEVACIZUMAB
     Indication: Ovarian cancer stage IV
     Dosage: UNK, CYCLE (RECEIVED 6 CYCLES)
     Route: 065
  3. CARBOPLATIN [Suspect]
     Active Substance: CARBOPLATIN
     Indication: Ovarian cancer stage IV
     Dosage: UNK, CYCLE (RECEIVED 6 CYCLES)
     Route: 065
  4. MIRVETUXIMAB SORAVTANSINE [Concomitant]
     Active Substance: MIRVETUXIMAB SORAVTANSINE
     Indication: Ovarian cancer stage IV
     Dosage: 6 MILLIGRAM/KILOGRAM, IN EVERY 21 DAY
     Route: 065

REACTIONS (1)
  - Drug ineffective [Unknown]
